FAERS Safety Report 12242056 (Version 1)
Quarter: 2016Q2

REPORT INFORMATION
  Report Type: Spontaneous
  Country: FR (occurrence: FR)
  Receive Date: 20160406
  Receipt Date: 20160406
  Transmission Date: 20160815
  Serious: Yes (Other)
  Sender: FDA-Public Use
  Company Number: FR-TEVA-649756ACC

PATIENT
  Sex: Female
  Weight: 65 kg

DRUGS (7)
  1. BENDAMUSTINE HYDROCHLORIDE. [Suspect]
     Active Substance: BENDAMUSTINE HYDROCHLORIDE
     Indication: PLASMA CELL MYELOMA
     Dosage: 6TH LINE
     Route: 042
     Dates: start: 201510
  2. VELCADE [Suspect]
     Active Substance: BORTEZOMIB
     Indication: PLASMA CELL MYELOMA
     Dosage: 1ST LINE, 5
     Route: 065
     Dates: start: 200910, end: 201004
  3. DEXAMETHASONE. [Suspect]
     Active Substance: DEXAMETHASONE
     Dosage: 2ND LINE, 5
     Route: 065
     Dates: start: 201111, end: 201211
  4. DEXAMETHASONE. [Suspect]
     Active Substance: DEXAMETHASONE
     Dosage: 3RD LINE, 5
     Route: 065
     Dates: start: 201401, end: 201406
  5. VELCADE [Suspect]
     Active Substance: BORTEZOMIB
     Dosage: 3RD LINE, 5
     Route: 065
     Dates: start: 201401, end: 201406
  6. CAELYX [Suspect]
     Active Substance: DOXORUBICIN HYDROCHLORIDE
     Indication: PLASMA CELL MYELOMA
     Dosage: 3RD LINE, 5
     Route: 065
     Dates: start: 201401, end: 201406
  7. DEXAMETHASONE. [Suspect]
     Active Substance: DEXAMETHASONE
     Indication: PLASMA CELL MYELOMA
     Dosage: 1ST LINE, 5
     Route: 065
     Dates: start: 200910, end: 201004

REACTIONS (2)
  - Off label use [Unknown]
  - Disease progression [Unknown]
